FAERS Safety Report 8601742-4 (Version None)
Quarter: 2012Q3

REPORT INFORMATION
  Report Type: 
  Country: None (occurrence: None)
  Receive Date: 20120817
  Receipt Date: 20120420
  Transmission Date: 20120928
  Serious: Yes (Other)
  Sender: FDA-Public Use
  Company Number: US-BRISTOL-MYERS SQUIBB COMPANY-16423261

PATIENT
  Age: 44 Year
  Sex: Female
  Weight: 62 kg

DRUGS (4)
  1. GRANISETRON [Concomitant]
     Dosage: SANCUSO PATCH. 1 PATCH FOR 7 DAYS
  2. ZOFRAN [Concomitant]
     Indication: NAUSEA
     Dosage: ALSO EVERY 8 HRS
     Route: 048
  3. ACYCLOVIR [Concomitant]
  4. SPRYCEL [Suspect]
     Indication: CHRONIC MYELOID LEUKAEMIA
     Dosage: TABS
     Route: 048
     Dates: start: 20120112

REACTIONS (8)
  - DYSGEUSIA [None]
  - DECREASED APPETITE [None]
  - MOUTH ULCERATION [None]
  - MADAROSIS [None]
  - STOMATITIS [None]
  - NAUSEA [None]
  - HAEMATOMA [None]
  - BONE PAIN [None]
